FAERS Safety Report 6517128-2 (Version None)
Quarter: 2009Q4

REPORT INFORMATION
  Report Type: 
  Country: None (occurrence: None)
  Receive Date: 20091223
  Receipt Date: 20091211
  Transmission Date: 20100525
  Serious: Yes (Death)
  Sender: FDA-Public Use
  Company Number: EC-GENENTECH-295814

PATIENT
  Sex: Male
  Weight: 55.8 kg

DRUGS (3)
  1. RITUXIMAB [Suspect]
     Indication: NON-HODGKIN'S LYMPHOMA
     Route: 042
     Dates: start: 20090701, end: 20091201
  2. RITUXIMAB [Suspect]
     Dosage: UNK
     Route: 042
  3. DEXTROPROPOXYPHENE [Concomitant]
     Indication: PAIN
     Route: 048
     Dates: start: 20090701, end: 20091201

REACTIONS (3)
  - BACK PAIN [None]
  - HEPATIC FAILURE [None]
  - JAUNDICE [None]
